FAERS Safety Report 22067164 (Version 1)
Quarter: 2023Q1

REPORT INFORMATION
  Report Type: Report from Study
  Country: EG (occurrence: EG)
  Receive Date: 20230307
  Receipt Date: 20230307
  Transmission Date: 20230417
  Serious: Yes (Death, Other)
  Sender: FDA-Public Use
  Company Number: EG-002147023-NVSC2023EG050819

PATIENT
  Age: 50 Year
  Sex: Male

DRUGS (3)
  1. ENTRESTO [Suspect]
     Active Substance: SACUBITRIL\VALSARTAN
     Indication: Product used for unknown indication
     Dosage: 100 MG, BID (END DATE OF TREATMENT WAS A MONTH AND HALF)
     Route: 048
  2. TORSEMIDE [Concomitant]
     Active Substance: TORSEMIDE
     Indication: Pulmonary oedema
     Dosage: 1 DOSAGE FORM, QD  (20 OR 10MG)  3 YEARS AGO
     Route: 048
  3. PLAVIX [Concomitant]
     Active Substance: CLOPIDOGREL BISULFATE
     Indication: Thrombosis
     Dosage: 1 DOSAGE FORM, BID (3 YEARS AGO)
     Route: 048

REACTIONS (7)
  - Generalised oedema [Fatal]
  - Cardiomyopathy [Fatal]
  - Ejection fraction decreased [Unknown]
  - Peripheral swelling [Unknown]
  - Gait disturbance [Unknown]
  - Hypertension [Unknown]
  - Fatigue [Unknown]
